FAERS Safety Report 13020720 (Version 1)
Quarter: 2016Q4

REPORT INFORMATION
  Report Type: Spontaneous
  Country: CA (occurrence: CA)
  Receive Date: 20161212
  Receipt Date: 20161212
  Transmission Date: 20170207
  Serious: Yes (Other)
  Sender: FDA-Public Use
  Company Number: CA-009507513-1612CAN004811

PATIENT
  Age: 5 Year
  Sex: Male
  Weight: 18.14 kg

DRUGS (2)
  1. SINGULAIR [Suspect]
     Active Substance: MONTELUKAST SODIUM
     Indication: RHINITIS ALLERGIC
     Dosage: 4.0 MG, 1 EVERY 1 DAY
     Route: 048
  2. OMEGA-3 ACIDS [Concomitant]
     Active Substance: OMEGA-3 FATTY ACIDS

REACTIONS (16)
  - Violence-related symptom [Recovering/Resolving]
  - Abnormal behaviour [Recovering/Resolving]
  - Somnolence [Recovering/Resolving]
  - Enuresis [Recovering/Resolving]
  - Dysphonia [Recovering/Resolving]
  - Communication disorder [Recovering/Resolving]
  - Dysarthria [Recovering/Resolving]
  - Learning disorder [Recovering/Resolving]
  - Sensory disturbance [Recovering/Resolving]
  - Abdominal pain upper [Recovering/Resolving]
  - Sleep disorder due to general medical condition, hypersomnia type [Recovering/Resolving]
  - Nightmare [Recovering/Resolving]
  - Aggression [Recovering/Resolving]
  - Disturbance in attention [Recovering/Resolving]
  - Depressed mood [Recovering/Resolving]
  - Pruritus [Recovering/Resolving]
